FAERS Safety Report 19373278 (Version 1)
Quarter: 2021Q2

REPORT INFORMATION
  Report Type: Report from Study
  Country: FR (occurrence: FR)
  Receive Date: 20210603
  Receipt Date: 20210603
  Transmission Date: 20210717
  Serious: Yes (Death)
  Sender: FDA-Public Use
  Company Number: FR-MYLANLABS-2021M1031926

PATIENT

DRUGS (4)
  1. CETUXIMAB. [Suspect]
     Active Substance: CETUXIMAB
     Dosage: 250 MILLIGRAM/SQ. METER, CYCLE, INFUSION AT 10 MG/MINUTE..
     Route: 041
  2. CISPLATIN. [Suspect]
     Active Substance: CISPLATIN
     Indication: SQUAMOUS CELL CARCINOMA OF HEAD AND NECK
     Dosage: 100 MILLIGRAM/SQ. METER, CYCLE, AS A 1H INFUSION ON DAY 1
     Route: 041
  3. CETUXIMAB. [Suspect]
     Active Substance: CETUXIMAB
     Indication: SQUAMOUS CELL CARCINOMA OF HEAD AND NECK
     Dosage: 400 MILLIGRAM/SQ. METER, CYCLEINFUSION AT 5 MG/MINUTE MAXIMUM SPEED ON DAY 1 OF CYCLE..
     Route: 041
  4. FLUOROURACIL. [Suspect]
     Active Substance: FLUOROURACIL
     Indication: SQUAMOUS CELL CARCINOMA OF HEAD AND NECK
     Dosage: 4000 MILLIGRAM/SQ. METER, CYCLE, AS A 96H CONTINUOUS INFUSION ON DAY 1?4
     Route: 041

REACTIONS (3)
  - Hypovolaemic shock [Fatal]
  - Mesenteric arterial occlusion [Fatal]
  - Dehydration [Fatal]
